FAERS Safety Report 14742149 (Version 1)
Quarter: 2018Q2

REPORT INFORMATION
  Report Type: Spontaneous
  Country: CZ (occurrence: CZ)
  Receive Date: 20180410
  Receipt Date: 20180410
  Transmission Date: 20180711
  Serious: Yes (Life-Threatening, Hospitalization, Other)
  Sender: FDA-Public Use
  Company Number: CZ-SA-2018SA092551

PATIENT
  Age: 43 Year
  Sex: Male

DRUGS (2)
  1. HERPESIN [Suspect]
     Active Substance: ACYCLOVIR
     Indication: INFLAMMATION
     Route: 042
     Dates: start: 201607
  2. SEFOTAK [Suspect]
     Active Substance: CEFOTAXIME SODIUM
     Indication: INFLAMMATION
     Route: 042
     Dates: start: 201607

REACTIONS (8)
  - Language disorder [Recovered/Resolved with Sequelae]
  - Restlessness [Recovered/Resolved]
  - Respiratory failure [Recovered/Resolved]
  - Generalised tonic-clonic seizure [Recovered/Resolved]
  - Condition aggravated [Recovered/Resolved]
  - Tongue biting [Recovered/Resolved]
  - Hemiparesis [Recovered/Resolved with Sequelae]
  - Sepsis [Recovered/Resolved]

NARRATIVE: CASE EVENT DATE: 201607
